FAERS Safety Report 13883005 (Version 17)
Quarter: 2020Q2

REPORT INFORMATION
  Report Type: Report from Study
  Country: US (occurrence: US)
  Receive Date: 20170818
  Receipt Date: 20200624
  Transmission Date: 20200713
  Serious: Yes (Hospitalization)
  Sender: FDA-Public Use
  Company Number: US-ACTELION-A-US2017-158188

PATIENT
  Age: 47 Year
  Sex: Female
  Weight: 94.79 kg

DRUGS (6)
  1. METOPROLOL. [Concomitant]
     Active Substance: METOPROLOL
  2. OPSUMIT [Suspect]
     Active Substance: MACITENTAN
     Dosage: 10 MG, QD
     Route: 048
  3. SILDENAFIL. [Concomitant]
     Active Substance: SILDENAFIL
  4. TYVASO [Suspect]
     Active Substance: TREPROSTINIL
     Indication: PRODUCT USED FOR UNKNOWN INDICATION
     Route: 065
  5. OPSUMIT [Suspect]
     Active Substance: MACITENTAN
     Indication: PULMONARY HYPERTENSION
     Dosage: 10 MG, QD
     Route: 048
  6. REMODULIN [Suspect]
     Active Substance: TREPROSTINIL
     Indication: PRODUCT USED FOR UNKNOWN INDICATION
     Route: 065

REACTIONS (34)
  - Malaise [Unknown]
  - Catheter site swelling [Unknown]
  - Device infusion issue [Recovered/Resolved]
  - Catheter site pain [Unknown]
  - Infusion site induration [Unknown]
  - Infusion site haemorrhage [Unknown]
  - Application site rash [Unknown]
  - Pulmonary arterial hypertension [Unknown]
  - Headache [Unknown]
  - Rhinorrhoea [Unknown]
  - Catheter site related reaction [Not Recovered/Not Resolved]
  - Application site irritation [Unknown]
  - Productive cough [Unknown]
  - General physical health deterioration [Unknown]
  - Therapy change [Unknown]
  - Oedema peripheral [Unknown]
  - Eye pain [Unknown]
  - Sneezing [Unknown]
  - Heart rate increased [Unknown]
  - Application site erythema [Unknown]
  - Cardiac disorder [Unknown]
  - Rash pruritic [Unknown]
  - Cough [Unknown]
  - Dizziness postural [Unknown]
  - Pain in extremity [Unknown]
  - Condition aggravated [Unknown]
  - Nasopharyngitis [Unknown]
  - Pyrexia [Unknown]
  - Pulmonary congestion [Unknown]
  - Catheter site erythema [Unknown]
  - Infusion site discharge [Unknown]
  - Nasal congestion [Unknown]
  - Infusion site infection [Unknown]
  - Sleep disorder [Unknown]

NARRATIVE: CASE EVENT DATE: 201809
